FAERS Safety Report 18360355 (Version 1)
Quarter: 2020Q4

REPORT INFORMATION
  Report Type: Other
  Country: SE (occurrence: SE)
  Receive Date: 20201008
  Receipt Date: 20201008
  Transmission Date: 20210114
  Serious: Yes (Life-Threatening, Hospitalization, Other)
  Sender: FDA-Public Use
  Company Number: SE-VALIDUS PHARMACEUTICALS LLC-SE-2020VAL000800

PATIENT

DRUGS (11)
  1. TROMBYL [Concomitant]
     Active Substance: ASPIRIN
     Indication: PRODUCT USED FOR UNKNOWN INDICATION
     Dosage: UNK
  2. AMLODIPINE [Concomitant]
     Active Substance: AMLODIPINE BESYLATE
     Indication: PRODUCT USED FOR UNKNOWN INDICATION
     Dosage: UNK
  3. CELECOXIB. [Suspect]
     Active Substance: CELECOXIB
     Indication: OSTEONECROSIS OF JAW
     Dosage: 200 MG, QD
     Route: 048
     Dates: start: 20190715, end: 20200423
  4. ESOMEPRAZOLE. [Concomitant]
     Active Substance: ESOMEPRAZOLE MAGNESIUM
     Indication: PRODUCT USED FOR UNKNOWN INDICATION
     Dosage: UNK
  5. FUROSEMIDE. [Concomitant]
     Active Substance: FUROSEMIDE
     Indication: PRODUCT USED FOR UNKNOWN INDICATION
     Dosage: UNK
  6. TRENTAL [Suspect]
     Active Substance: PENTOXIFYLLINE
     Indication: OSTEONECROSIS OF JAW
     Dosage: 800 MG, QD
     Route: 048
     Dates: start: 20190715, end: 20200423
  7. TOCOPHERYL ACETATE [Suspect]
     Active Substance: .ALPHA.-TOCOPHEROL ACETATE
     Indication: OSTEONECROSIS OF JAW
     Dosage: 400 MG, QD
     Route: 048
     Dates: start: 20190715, end: 20200423
  8. BONEFOS [Suspect]
     Active Substance: CLODRONATE DISODIUM
     Indication: OSTEONECROSIS OF JAW
     Dosage: 2X1 5 DAYS A WEEK
     Route: 048
     Dates: start: 20190715, end: 20200423
  9. PROPAVAN [Concomitant]
     Active Substance: PROPIOMAZINE
     Indication: PRODUCT USED FOR UNKNOWN INDICATION
     Dosage: UNK
  10. ATORVASTATIN [Concomitant]
     Active Substance: ATORVASTATIN
     Indication: PRODUCT USED FOR UNKNOWN INDICATION
     Dosage: UNK
  11. METOPROLOL. [Concomitant]
     Active Substance: METOPROLOL
     Indication: PRODUCT USED FOR UNKNOWN INDICATION
     Dosage: UNK

REACTIONS (2)
  - Renal failure [Recovered/Resolved with Sequelae]
  - Nephropathy [Recovered/Resolved with Sequelae]

NARRATIVE: CASE EVENT DATE: 20200423
